FAERS Safety Report 4552212-4 (Version None)
Quarter: 2004Q4

REPORT INFORMATION
  Report Type: 
  Country: None (occurrence: None)
  Receive Date: 20041217
  Receipt Date: 20040805
  Transmission Date: 20050328
  Serious: No
  Sender: FDA-Public Use
  Company Number: 2004-BP-06599BP

PATIENT
  Age: 84 Year
  Sex: Male

DRUGS (5)
  1. SPIRIVA [Suspect]
     Indication: BRONCHIECTASIS
     Dosage: 18 MCG (18 MCG), IH
     Route: 055
     Dates: start: 20040729, end: 20040731
  2. ATROVENT [Concomitant]
  3. BIAXIN [Concomitant]
  4. RIFAMPICIN [Concomitant]
  5. ADVAIR (SERETIDE MITE) [Concomitant]

REACTIONS (3)
  - DUODENOGASTRIC REFLUX [None]
  - DYSPEPSIA [None]
  - HICCUPS [None]
